FAERS Safety Report 5502656-9 (Version None)
Quarter: 2007Q4

REPORT INFORMATION
  Report Type: 
  Country: None (occurrence: None)
  Receive Date: 20071029
  Receipt Date: 20071012
  Transmission Date: 20080405
  Serious: Yes (Death)
  Sender: FDA-Public Use
  Company Number: US021440

PATIENT

DRUGS (1)
  1. FENTORA [Suspect]
     Dosage: BUCCAL
     Route: 002

REACTIONS (1)
  - DEATH [None]
